FAERS Safety Report 5095279-X (Version None)
Quarter: 2006Q3

REPORT INFORMATION
  Report Type: 
  Country: None (occurrence: None)
  Receive Date: 20060731
  Receipt Date: 20060420
  Transmission Date: 20061208
  Serious: No
  Sender: FDA-Public Use
  Company Number: 2006PV012387

PATIENT
  Age: 59 Year
  Sex: Female

DRUGS (1)
  1. BYETTA [Suspect]
     Indication: DIABETES MELLITUS NON-INSULIN-DEPENDENT
     Dosage: 10 MCG; SC, SEE IMAGE
     Route: 058

REACTIONS (3)
  - DECREASED APPETITE [None]
  - VOMITING [None]
  - WEIGHT DECREASED [None]
